FAERS Safety Report 16929699 (Version 1)
Quarter: 2019Q4

REPORT INFORMATION
  Report Type: Spontaneous
  Country: GB (occurrence: GB)
  Receive Date: 20191017
  Receipt Date: 20191017
  Transmission Date: 20200122
  Serious: Yes (Life-Threatening, Hospitalization)
  Sender: FDA-Public Use
  Company Number: GB-MYLANLABS-2019M1096711

PATIENT
  Age: 17 Year
  Sex: Male

DRUGS (3)
  1. HYDROCORTISONE. [Concomitant]
     Active Substance: HYDROCORTISONE
     Indication: STEROID THERAPY
     Route: 042
  2. CEFUROXIME. [Suspect]
     Active Substance: CEFUROXIME
     Indication: ANTIBIOTIC THERAPY
     Route: 042
  3. METRONIDAZOLE. [Suspect]
     Active Substance: METRONIDAZOLE
     Indication: ANTIBIOTIC THERAPY
     Route: 042

REACTIONS (6)
  - Acute kidney injury [Recovered/Resolved]
  - Gastroenteritis Escherichia coli [Recovering/Resolving]
  - Thrombocytopenia [Recovered/Resolved]
  - Haemolytic uraemic syndrome [Recovered/Resolved]
  - Focal dyscognitive seizures [Recovered/Resolved]
  - Condition aggravated [Recovering/Resolving]
